FAERS Safety Report 11594324 (Version 2)
Quarter: 2015Q4

REPORT INFORMATION
  Report Type: Spontaneous
  Country: US (occurrence: US)
  Receive Date: 20151005
  Receipt Date: 20151130
  Transmission Date: 20160304
  Serious: Yes (Hospitalization)
  Sender: FDA-Public Use
  Company Number: US-PFIZER INC-2015326173

PATIENT
  Age: 71 Year
  Sex: Female
  Weight: 61 kg

DRUGS (7)
  1. TYLENOL ARTHRITIS PAIN [Suspect]
     Active Substance: ACETAMINOPHEN
     Indication: ARTHRITIS
     Dosage: 1X/DAY (ON + OFF; 1 OR 2 A DAY)
     Dates: start: 201410
  2. CELECOXIB. [Suspect]
     Active Substance: CELECOXIB
     Indication: ARTHRITIS
     Dosage: 100 MG, 2X/DAY
     Dates: start: 201412
  3. CELECOXIB. [Suspect]
     Active Substance: CELECOXIB
     Indication: HYPERTONIC BLADDER
  4. CELEBREX [Suspect]
     Active Substance: CELECOXIB
     Indication: HYPERTONIC BLADDER
     Dosage: 100 MG, 2X/DAY
     Dates: end: 201412
  5. MELATONIN [Concomitant]
     Active Substance: MELATONIN
     Dosage: 5 MG, 1 AT NIGHT
  6. VALIUM [Concomitant]
     Active Substance: DIAZEPAM
     Indication: BACK DISORDER
     Dosage: 5 MG, AT NIGHT
  7. CELEBREX [Suspect]
     Active Substance: CELECOXIB
     Indication: ARTHRITIS
     Dosage: 100 MG, 2X/DAY
     Dates: end: 201205

REACTIONS (13)
  - Joint effusion [Unknown]
  - Tendon rupture [Unknown]
  - Renal disorder [Unknown]
  - Liver disorder [Unknown]
  - Arthritis [Not Recovered/Not Resolved]
  - Rotator cuff syndrome [Unknown]
  - Loose body in joint [Unknown]
  - Chondrosis [Unknown]
  - Drug ineffective for unapproved indication [Not Recovered/Not Resolved]
  - Pre-existing condition improved [Not Recovered/Not Resolved]
  - Condition aggravated [Not Recovered/Not Resolved]
  - Body height decreased [Unknown]
  - Osteoarthritis [Unknown]

NARRATIVE: CASE EVENT DATE: 201501
